FAERS Safety Report 16329422 (Version 2)
Quarter: 2019Q3

REPORT INFORMATION
  Report Type: Spontaneous
  Country: US (occurrence: US)
  Receive Date: 20190520
  Receipt Date: 20190726
  Transmission Date: 20191004
  Serious: Yes (Other)
  Sender: FDA-Public Use
  Company Number: US-JNJFOC-20190442900

PATIENT
  Age: 55 Year
  Sex: Male
  Weight: 138.47 kg

DRUGS (2)
  1. INVEGA SUSTENNA [Suspect]
     Active Substance: PALIPERIDONE PALMITATE
     Indication: SCHIZOPHRENIA
     Route: 030
     Dates: start: 201904
  2. ABILIFY [Concomitant]
     Active Substance: ARIPIPRAZOLE
     Indication: SCHIZOPHRENIA
     Dates: start: 201903

REACTIONS (2)
  - Refusal of treatment by patient [Unknown]
  - Schizophrenia [Unknown]

NARRATIVE: CASE EVENT DATE: 20190428
